FAERS Safety Report 15649907 (Version 1)
Quarter: 2018Q4

REPORT INFORMATION
  Report Type: Spontaneous
  Country: TG (occurrence: TG)
  Receive Date: 20181123
  Receipt Date: 20181123
  Transmission Date: 20190205
  Serious: Yes (Other)
  Sender: FDA-Public Use
  Company Number: TG-LUPIN PHARMACEUTICALS INC.-2018-08082

PATIENT
  Age: 32 Year
  Sex: Male

DRUGS (1)
  1. TRAMADOL. [Suspect]
     Active Substance: TRAMADOL
     Indication: PRODUCT USED FOR UNKNOWN INDICATION
     Dosage: 2280 MG (19 CAPSULES)
     Route: 065

REACTIONS (13)
  - Drug withdrawal syndrome [Unknown]
  - Feeling hot [Unknown]
  - Drug dependence [Unknown]
  - Dyspnoea [Unknown]
  - Depression [Unknown]
  - Lethargy [Unknown]
  - Myalgia [Unknown]
  - Abdominal pain upper [Unknown]
  - Decreased appetite [Unknown]
  - Insomnia [Unknown]
  - Dizziness [Unknown]
  - Drug abuse [Unknown]
  - Anxiety [Unknown]
